FAERS Safety Report 16030986 (Version 1)
Quarter: 2019Q1

REPORT INFORMATION
  Report Type: Spontaneous
  Country: US (occurrence: US)
  Receive Date: 20190304
  Receipt Date: 20190304
  Transmission Date: 20190418
  Serious: Yes (Other)
  Sender: FDA-Public Use
  Company Number: US-PFIZER INC-2019082853

PATIENT
  Age: 73 Year
  Sex: Female
  Weight: 200 kg

DRUGS (3)
  1. PRISTIQ EXTENDED-RELEASE [Suspect]
     Active Substance: DESVENLAFAXINE SUCCINATE
     Indication: DEPRESSION
     Dosage: 100 MG, DAILY
     Route: 048
     Dates: end: 2019
  2. LEVEMIR [Concomitant]
     Active Substance: INSULIN DETEMIR
     Indication: TYPE 2 DIABETES MELLITUS
     Dosage: UNK, 1X/DAY (BETWEEN 28 AND 30 UNITS AT NIGHT)
     Route: 058
  3. HUMALOG [Concomitant]
     Active Substance: INSULIN LISPRO
     Indication: TYPE 2 DIABETES MELLITUS
     Dosage: UNK (2 TO 6 UNITS, SUBCUTANEOUS INJECTION PER MEAL)
     Route: 058
     Dates: start: 2014

REACTIONS (9)
  - Food interaction [Unknown]
  - Headache [Unknown]
  - Product dose omission [Unknown]
  - Crying [Recovered/Resolved]
  - Hyperhidrosis [Not Recovered/Not Resolved]
  - Somnolence [Unknown]
  - Abnormal dreams [Not Recovered/Not Resolved]
  - Ankle fracture [Unknown]
  - Feeling abnormal [Not Recovered/Not Resolved]

NARRATIVE: CASE EVENT DATE: 201901
